FAERS Safety Report 7589199-6 (Version None)
Quarter: 2011Q3

REPORT INFORMATION
  Report Type: 
  Country: None (occurrence: None)
  Receive Date: 20110705
  Receipt Date: 20110615
  Transmission Date: 20111222
  Serious: Yes (Other)
  Sender: FDA-Public Use
  Company Number: US-PFIZER INC-2006012359

PATIENT
  Sex: Female
  Weight: 77 kg

DRUGS (8)
  1. LASIX [Concomitant]
     Indication: SWELLING
  2. POTASSIUM [Concomitant]
     Indication: FLUID RETENTION
     Dosage: UNK
     Dates: start: 19890101
  3. TOPROL-XL [Concomitant]
     Indication: HYPERTENSION
     Dosage: UNK
     Dates: start: 19890101
  4. POTASSIUM [Concomitant]
     Indication: SWELLING
  5. PROVERA [Suspect]
     Indication: HORMONE REPLACEMENT THERAPY
     Dosage: UNK
     Route: 048
     Dates: start: 19880101, end: 19960101
  6. LASIX [Concomitant]
     Indication: FLUID RETENTION
     Dosage: UNK
     Dates: start: 19890101
  7. PREMARIN [Suspect]
     Indication: HORMONE REPLACEMENT THERAPY
     Dosage: UNK
     Route: 048
     Dates: start: 19880101, end: 19960101
  8. PREMPRO [Suspect]
     Indication: HORMONE REPLACEMENT THERAPY
     Dosage: UNK
     Route: 048
     Dates: start: 19960101, end: 19970101

REACTIONS (1)
  - BREAST CANCER FEMALE [None]
